FAERS Safety Report 9422354 (Version 2)
Quarter: 2013Q3

REPORT INFORMATION
  Report Type: Spontaneous
  Country: JP (occurrence: None)
  Receive Date: 20130722
  Receipt Date: 20130801
  Transmission Date: 20140515
  Serious: Yes (Hospitalization, Other)
  Sender: FDA-Public Use
  Company Number: 2013036923

PATIENT
  Age: 23 Year
  Sex: Female

DRUGS (3)
  1. ALBUMINAR [Suspect]
     Indication: HEPATIC FAILURE
     Dosage: ALBUMINAR 25% I.V. INJECTION 12.5 G/50 ML,  (NOT OTHERWISE SPECIFIED)
     Route: 042
     Dates: start: 20121108, end: 20121111
  2. PLASMA (FRESH FROZEN PLASMA) [Concomitant]
  3. LACTULOSE (LACTULOSE) [Concomitant]

REACTIONS (3)
  - Pulmonary oedema [None]
  - Cardiac failure congestive [None]
  - Volume blood increased [None]
